FAERS Safety Report 11095992 (Version 2)
Quarter: 2015Q2

REPORT INFORMATION
  Report Type: Spontaneous
  Country: US (occurrence: US)
  Receive Date: 20150507
  Receipt Date: 20150525
  Transmission Date: 20150821
  Serious: Yes (Life-Threatening)
  Sender: FDA-Public Use
  Company Number: US-ROCHE-1574402

PATIENT
  Sex: Female
  Weight: 120.65 kg

DRUGS (3)
  1. SOVALDI [Suspect]
     Active Substance: SOFOSBUVIR
     Indication: PRODUCT USED FOR UNKNOWN INDICATION
     Route: 065
  2. PEGASYS [Suspect]
     Active Substance: PEGINTERFERON ALFA-2A
     Indication: PRODUCT USED FOR UNKNOWN INDICATION
     Route: 065
  3. COPEGUS [Suspect]
     Active Substance: RIBAVIRIN
     Indication: PRODUCT USED FOR UNKNOWN INDICATION
     Route: 065

REACTIONS (14)
  - Nausea [Unknown]
  - Balance disorder [Unknown]
  - Bradycardia [Unknown]
  - Cerebrovascular accident [Unknown]
  - Vomiting [Unknown]
  - Seizure [Unknown]
  - Diarrhoea [Unknown]
  - Abdominal discomfort [Unknown]
  - Dyspnoea [Unknown]
  - Respiratory failure [Unknown]
  - Anaemia [Unknown]
  - Dizziness [Unknown]
  - Ammonia increased [Unknown]
  - Fatigue [Unknown]
